FAERS Safety Report 9684437 (Version 1)
Quarter: 2013Q4

REPORT INFORMATION
  Report Type: Spontaneous
  Country: US (occurrence: US)
  Receive Date: 20131112
  Receipt Date: 20131112
  Transmission Date: 20140711
  Serious: No
  Sender: FDA-Public Use
  Company Number: US-PFIZER INC-2013318154

PATIENT
  Age: 81 Year
  Sex: Female
  Weight: 56.69 kg

DRUGS (4)
  1. ZOLOFT [Suspect]
     Indication: ANXIETY
     Dosage: 50 MG(BY TAKING HALF TABLET OF 100MG), 1X/DAY
     Route: 048
     Dates: start: 20131025, end: 2013
  2. ZOLOFT [Suspect]
     Dosage: 100 MG, 1X/DAY
     Route: 048
     Dates: start: 2013, end: 2013
  3. ZOLOFT [Suspect]
     Dosage: 50 MG (AS HALF TABLET OF 100MG TWO TIMES A DAY), 2X/DAY
     Route: 048
     Dates: start: 2013
  4. SYNTHROID [Concomitant]
     Dosage: UNK, 1X/DAY (IN THE MORNING)

REACTIONS (5)
  - Drug effect incomplete [Not Recovered/Not Resolved]
  - Drug ineffective [Not Recovered/Not Resolved]
  - Confusional state [Not Recovered/Not Resolved]
  - Hangover [Not Recovered/Not Resolved]
  - Drug intolerance [Not Recovered/Not Resolved]
